FAERS Safety Report 24108875 (Version 1)
Quarter: 2024Q3

REPORT INFORMATION
  Report Type: Spontaneous
  Country: FR (occurrence: FR)
  Receive Date: 20240718
  Receipt Date: 20240718
  Transmission Date: 20241016
  Serious: Yes (Hospitalization)
  Sender: MYLAN
  Company Number: FR-MYLANLABS-2024M1065873

PATIENT
  Age: 26 Year
  Sex: Male

DRUGS (7)
  1. PANTOPRAZOLE [Suspect]
     Active Substance: PANTOPRAZOLE
     Indication: Evidence based treatment
     Dosage: UNK
     Route: 042
  2. PHLOROGLUCINOL [Suspect]
     Active Substance: PHLOROGLUCINOL
     Indication: Evidence based treatment
     Dosage: UNK
     Route: 042
  3. GLYCERIN [Suspect]
     Active Substance: GLYCERIN
     Indication: Illness
     Dosage: UNK
     Route: 048
  4. HYDROGEN PEROXIDE [Suspect]
     Active Substance: HYDROGEN PEROXIDE
     Indication: Illness
     Dosage: UNK
     Route: 048
  5. PERFALGAN [Suspect]
     Active Substance: ACETAMINOPHEN
     Indication: Evidence based treatment
     Dosage: UNK
     Route: 042
  6. ALCOHOL [Suspect]
     Active Substance: ALCOHOL
     Indication: Illness
     Dosage: UNK
     Route: 048
  7. MORPHINE [Concomitant]
     Active Substance: MORPHINE
     Indication: Evidence based treatment
     Dosage: UNK
     Route: 042

REACTIONS (2)
  - Therapy non-responder [Unknown]
  - Intentional product misuse [Unknown]
